FAERS Safety Report 4317715-6 (Version None)
Quarter: 2004Q1

REPORT INFORMATION
  Report Type: 
  Country: None (occurrence: None)
  Receive Date: 20040312
  Receipt Date: 20040227
  Transmission Date: 20041129
  Serious: Yes (Other)
  Sender: FDA-Public Use
  Company Number: 2004-06736

PATIENT
  Age: 59 Year
  Sex: Male
  Weight: 59 kg

DRUGS (3)
  1. VIREAD [Suspect]
     Dosage: 300 MG QD PO
     Route: 048
     Dates: start: 20030401, end: 20030501
  2. PEGASYS [Concomitant]
  3. REBETOL [Concomitant]

REACTIONS (4)
  - ACIDOSIS [None]
  - CONDITION AGGRAVATED [None]
  - HYPOKALAEMIA [None]
  - RENAL FAILURE [None]
